FAERS Safety Report 9783659 (Version 1)
Quarter: 2013Q4

REPORT INFORMATION
  Report Type: Spontaneous
  Country: AU (occurrence: None)
  Receive Date: 20131223
  Receipt Date: 20131223
  Transmission Date: 20140711
  Serious: Yes (Other)
  Sender: FDA-Public Use
  Company Number: 2013000350

PATIENT
  Age: 63 Year
  Sex: Female

DRUGS (9)
  1. ACEON [Suspect]
     Indication: PRODUCT USED FOR UNKNOWN INDICATION
  2. BYETTA [Suspect]
  3. METFORMINE [Suspect]
  4. ALPHAGAN (BRIMONIDINE TARTRATE) (BRIMONIDINE TARTRATE) [Concomitant]
  5. AMLODIPINE (AMLODIPINE) [Concomitant]
  6. ATORVASTAIN (ATORVASTATIN) [Concomitant]
  7. CEPHALEXIN (CEPHALEXIN) [Concomitant]
  8. CHOLECALCIFEROL (COLECALCIFEROL) [Concomitant]
  9. GLICLAZIDE (GLICLAZIDE) [Concomitant]

REACTIONS (5)
  - Vomiting [None]
  - Nausea [None]
  - Lactic acidosis [None]
  - Oliguria [None]
  - Renal failure acute [None]
